FAERS Safety Report 6282887-3 (Version None)
Quarter: 2009Q3

REPORT INFORMATION
  Report Type: 
  Country: None (occurrence: None)
  Receive Date: 20090722
  Receipt Date: 20090722
  Transmission Date: 20100115
  Serious: Yes (Other)
  Sender: FDA-Public Use
  Company Number: None

PATIENT
  Age: 54 Year
  Sex: Female
  Weight: 68.9467 kg

DRUGS (1)
  1. ACTONEL [Suspect]
     Indication: OSTEOPENIA
     Dosage: 1 TABLET MONTHLY PO  ONCE
     Route: 048
     Dates: start: 20090719, end: 20090719

REACTIONS (11)
  - BACK PAIN [None]
  - CHILLS [None]
  - DIARRHOEA [None]
  - FEELING ABNORMAL [None]
  - FLATULENCE [None]
  - GAIT DISTURBANCE [None]
  - HEADACHE [None]
  - IMPAIRED WORK ABILITY [None]
  - MIDDLE INSOMNIA [None]
  - NECK PAIN [None]
  - TREMOR [None]
